FAERS Safety Report 19475516 (Version 1)
Quarter: 2021Q2

REPORT INFORMATION
  Report Type: Spontaneous
  Country: ES (occurrence: ES)
  Receive Date: 20210630
  Receipt Date: 20210630
  Transmission Date: 20210717
  Serious: Yes (Other)
  Sender: FDA-Public Use
  Company Number: ES-AMGEN-ESPSP2021097893

PATIENT
  Age: 52 Year
  Sex: Male
  Weight: 65.9 kg

DRUGS (13)
  1. ADALIMUMAB [Suspect]
     Active Substance: ADALIMUMAB
     Indication: CROHN^S DISEASE
     Dosage: UNK
     Route: 058
     Dates: start: 20190613
  2. URBASON [METHYLPREDNISOLONE] [Concomitant]
     Active Substance: METHYLPREDNISOLONE
     Indication: CROHN^S DISEASE
     Dosage: UNK
     Dates: start: 20191016, end: 20191016
  3. FORTASEC [LOPERAMIDE] [Concomitant]
     Active Substance: LOPERAMIDE
     Indication: CROHN^S DISEASE
     Dosage: UNK
     Dates: start: 20191104
  4. STELARA [Suspect]
     Active Substance: USTEKINUMAB
     Dosage: UNK
     Route: 042
     Dates: start: 20191120, end: 20191120
  5. LIDOCAINE. [Concomitant]
     Active Substance: LIDOCAINE
     Indication: CROHN^S DISEASE
     Dosage: UNK
     Dates: start: 20190613
  6. PREDNISONE. [Concomitant]
     Active Substance: PREDNISONE
     Indication: CROHN^S DISEASE
     Dosage: 20 MILLIGRAM
     Dates: start: 20190508
  7. STELARA [Suspect]
     Active Substance: USTEKINUMAB
     Indication: CROHN^S DISEASE
     Dosage: UNK
     Route: 058
     Dates: start: 20190613
  8. PROPOFOL. [Concomitant]
     Active Substance: PROPOFOL
     Dosage: 200 MILLIGRAM
     Dates: start: 20190523, end: 20190523
  9. DACORTIN [Concomitant]
     Active Substance: PREDNISONE
     Indication: CROHN^S DISEASE
     Dosage: UNK
     Dates: start: 20191016
  10. OMEPRAZOLE. [Concomitant]
     Active Substance: OMEPRAZOLE
     Dosage: UNK
     Dates: start: 2017
  11. STELARA [Suspect]
     Active Substance: USTEKINUMAB
     Dosage: 90 MILLIGRAM, Q8WK
     Route: 058
     Dates: start: 20200115
  12. URBASON [METHYLPREDNISOLONE] [Concomitant]
     Active Substance: METHYLPREDNISOLONE
     Dosage: 17?FEB?2020 TO 26?FEB?2020
     Route: 065
     Dates: start: 20200226
  13. SALOFALK [AMINOSALICYLIC ACID] [Concomitant]
     Active Substance: AMINOSALICYLIC ACID
     Indication: CROHN^S DISEASE
     Dosage: UNK
     Dates: start: 20191104

REACTIONS (1)
  - Crohn^s disease [Recovered/Resolved]

NARRATIVE: CASE EVENT DATE: 20200217
